FAERS Safety Report 4519532-0 (Version None)
Quarter: 2004Q4

REPORT INFORMATION
  Report Type: 
  Country: None (occurrence: None)
  Receive Date: 20041202
  Receipt Date: 20041117
  Transmission Date: 20050328
  Serious: Yes (Death)
  Sender: FDA-Public Use
  Company Number: 2004AP05071

PATIENT
  Age: 26 Day
  Sex: Male
  Weight: 2.154 kg

DRUGS (1)
  1. TENORMIN [Suspect]
     Dosage: 0.59 IN BABY'S BLOOD LEVEL
     Route: 063

REACTIONS (9)
  - BRADYCARDIA [None]
  - BRAIN HYPOXIA [None]
  - CEREBRAL ISCHAEMIA [None]
  - DRUG EXPOSURE DURING PREGNANCY [None]
  - DRUG EXPOSURE VIA BREAST MILK [None]
  - FOETAL GROWTH RETARDATION [None]
  - HYPOTHERMIA [None]
  - INJURY [None]
  - NERVOUS SYSTEM DISORDER [None]
